FAERS Safety Report 24352236 (Version 1)
Quarter: 2024Q3

REPORT INFORMATION
  Report Type: Report from Study
  Country: EG (occurrence: EG)
  Receive Date: 20240923
  Receipt Date: 20240923
  Transmission Date: 20241017
  Serious: No
  Sender: ROCHE
  Company Number: EG-ROCHE-3286322

PATIENT
  Age: 60 Year
  Sex: Female

DRUGS (9)
  1. HERCEPTIN [Suspect]
     Active Substance: TRASTUZUMAB
     Indication: Breast cancer
     Route: 042
     Dates: start: 20181029
  2. ARIMIDEX [Suspect]
     Active Substance: ANASTROZOLE
     Indication: Breast cancer
     Route: 048
     Dates: start: 20181216
  3. TAXOL [Suspect]
     Active Substance: PACLITAXEL
     Indication: Breast cancer
     Dosage: 80.00 MILLIGRAM(S)/SQ. METER? FREQUENCY TEXT:DAY 1, 8 AND 15 Q 28 DAYS
     Route: 042
     Dates: start: 20181029, end: 20181202
  4. ZOLEDRONIC ACID [Concomitant]
     Active Substance: ZOLEDRONIC ACID
     Indication: Bone pain
     Route: 042
     Dates: start: 20220201
  5. ZOLEDRONIC ACID [Concomitant]
     Active Substance: ZOLEDRONIC ACID
     Indication: Osteoporosis
  6. CELECOXIB [Concomitant]
     Active Substance: CELECOXIB
     Indication: Bone pain
     Route: 048
     Dates: start: 20220823, end: 20220905
  7. CELECOXIB [Concomitant]
     Active Substance: CELECOXIB
     Route: 048
     Dates: start: 20221004, end: 20221104
  8. ACETAMINOPHEN [Concomitant]
     Active Substance: ACETAMINOPHEN
     Indication: Bone pain
     Route: 048
     Dates: start: 20220823, end: 20220905
  9. RANITIDINE [Concomitant]
     Active Substance: RANITIDINE
     Indication: Gastritis
     Route: 048
     Dates: start: 20190225, end: 20190311

REACTIONS (2)
  - Fatigue [Unknown]
  - Pain in extremity [Unknown]

NARRATIVE: CASE EVENT DATE: 20221117
